FAERS Safety Report 13505306 (Version 6)
Quarter: 2018Q1

REPORT INFORMATION
  Report Type: Report from Study
  Country: None (occurrence: JP)
  Receive Date: 20170502
  Receipt Date: 20180109
  Transmission Date: 20180508
  Serious: Yes (Hospitalization, Disabling, Other)
  Sender: FDA-Public Use
  Company Number: JP-ABBVIE-16P-087-1822599-00

PATIENT
  Age: 85 Year
  Sex: Male
  Weight: 59 kg

DRUGS (7)
  1. IMIDAFENACIN [Concomitant]
     Active Substance: IMIDAFENACIN
     Indication: BENIGN PROSTATIC HYPERPLASIA
     Route: 048
  2. VIEKIRAX [Suspect]
     Active Substance: OMBITASVIR\PARITAPREVIR\RITONAVIR
     Indication: HEPATITIS C
     Route: 048
     Dates: start: 20161112, end: 20161219
  3. ASPIRIN/DIALUMINATE [Concomitant]
     Indication: CEREBRAL INFARCTION
     Route: 048
  4. ASPIRIN/DIALUMINATE [Concomitant]
     Indication: DIZZINESS
  5. IBUDILAST [Concomitant]
     Active Substance: IBUDILAST
     Indication: DIZZINESS
     Route: 048
  6. IBUDILAST [Concomitant]
     Active Substance: IBUDILAST
     Indication: CEREBROVASCULAR ACCIDENT
  7. SILODOSIN [Concomitant]
     Active Substance: SILODOSIN
     Indication: BENIGN PROSTATIC HYPERPLASIA
     Route: 048

REACTIONS (3)
  - Anaemia [Not Recovered/Not Resolved]
  - Fall [Not Recovered/Not Resolved]
  - Tibia fracture [Recovered/Resolved with Sequelae]

NARRATIVE: CASE EVENT DATE: 20161219
